FAERS Safety Report 19982916 (Version 1)
Quarter: 2021Q4

REPORT INFORMATION
  Report Type: Spontaneous
  Country: US (occurrence: US)
  Receive Date: 20211021
  Receipt Date: 20211021
  Transmission Date: 20220303
  Serious: Yes (Disabling)
  Sender: FDA-Public Use
  Company Number: None

PATIENT
  Age: 77 Year
  Sex: Male
  Weight: 68.1 kg

DRUGS (3)
  1. PEMBROLIZUMAB [Suspect]
     Active Substance: PEMBROLIZUMAB
     Indication: Oesophageal carcinoma
     Dates: start: 20201014, end: 20210908
  2. PEMBROLIZUMAB [Concomitant]
     Active Substance: PEMBROLIZUMAB
     Dates: start: 20201014, end: 20210721
  3. INFLIXIMAB [Concomitant]
     Active Substance: INFLIXIMAB
     Dates: start: 20210930, end: 20211013

REACTIONS (2)
  - Oral lichenoid reaction [None]
  - Drug intolerance [None]

NARRATIVE: CASE EVENT DATE: 20210721
